FAERS Safety Report 6358098-X (Version None)
Quarter: 2009Q3

REPORT INFORMATION
  Report Type: 
  Country: None (occurrence: None)
  Receive Date: 20090911
  Receipt Date: 20090831
  Transmission Date: 20100115
  Serious: Yes (Disabling, Other)
  Sender: FDA-Public Use
  Company Number: A-CH2009-26769

PATIENT
  Age: 66 Year
  Sex: Female
  Weight: 80 kg

DRUGS (7)
  1. TRACLEER [Suspect]
     Indication: PULMONARY ARTERIAL HYPERTENSION
     Dosage: 125 MG, BID, ORAL 62.5 MG, BID, ORAL
     Route: 048
     Dates: start: 20081010, end: 20081109
  2. TRACLEER [Suspect]
     Indication: PULMONARY ARTERIAL HYPERTENSION
     Dosage: 125 MG, BID, ORAL 62.5 MG, BID, ORAL
     Route: 048
     Dates: start: 20081110, end: 20081208
  3. TRACLEER [Suspect]
     Indication: PULMONARY ARTERIAL HYPERTENSION
     Dosage: 125 MG, BID, ORAL 62.5 MG, BID, ORAL
     Route: 048
     Dates: start: 20081209, end: 20090701
  4. LANOXIN [Suspect]
  5. SILDENAFIL CITRATE [Concomitant]
  6. ASCAL (CARBASALATE CALCIUM) [Concomitant]
  7. AMLODIPINE [Concomitant]

REACTIONS (5)
  - BRADYCARDIA [None]
  - DIZZINESS [None]
  - DYSPNOEA [None]
  - FATIGUE [None]
  - PALPITATIONS [None]
